FAERS Safety Report 14073878 (Version 1)
Quarter: 2017Q4

REPORT INFORMATION
  Report Type: Spontaneous
  Country: US (occurrence: US)
  Receive Date: 20171010
  Receipt Date: 20171010
  Transmission Date: 20180321
  Serious: No
  Sender: FDA-Public Use
  Company Number: US-JNJFOC-20170907614

PATIENT
  Age: 38 Year
  Sex: Male
  Weight: 49.9 kg

DRUGS (2)
  1. TYLENOL REGULAR STRENGTH [Suspect]
     Active Substance: ACETAMINOPHEN
     Indication: EUPHORIC MOOD
     Dosage: MORE THAN RECOMMENDED, AFTER AWHILE WAS TAKING 8-9 AND THEN 10-14 A DAY (2-4 EVERY COUPLE OF HOURS)
     Route: 048
     Dates: start: 20170704
  2. TYLENOL REGULAR STRENGTH [Suspect]
     Active Substance: ACETAMINOPHEN
     Indication: PAIN
     Dosage: MORE THAN RECOMMENDED, AFTER AWHILE WAS TAKING 8-9 AND THEN 10-14 A DAY (2-4 EVERY COUPLE OF HOURS)
     Route: 048
     Dates: start: 20170704

REACTIONS (5)
  - Dizziness [Unknown]
  - Inappropriate schedule of drug administration [Unknown]
  - Asthenia [Unknown]
  - Intentional product misuse [Unknown]
  - Overdose [Unknown]
